FAERS Safety Report 15553016 (Version 1)
Quarter: 2018Q4

REPORT INFORMATION
  Report Type: Spontaneous
  Country: US (occurrence: US)
  Receive Date: 20181026
  Receipt Date: 20181026
  Transmission Date: 20190205
  Serious: Yes (Hospitalization, Other)
  Sender: FDA-Public Use
  Company Number: US-ENDO PHARMACEUTICALS INC-2018-040577

PATIENT
  Age: 43 Year
  Sex: Male
  Weight: 172.4 kg

DRUGS (2)
  1. ANDROGEL [Suspect]
     Active Substance: TESTOSTERONE
     Indication: ANDROGEN REPLACEMENT THERAPY
     Dosage: UNK UNKNOWN, UNKNOWN
     Route: 065
     Dates: start: 201109
  2. TESTIM [Suspect]
     Active Substance: TESTOSTERONE
     Indication: ANDROGEN REPLACEMENT THERAPY
     Dosage: UNK UNKNOWN, UNKNOWN
     Route: 065
     Dates: start: 201104, end: 201208

REACTIONS (5)
  - Sepsis [Unknown]
  - Chest pain [Unknown]
  - Deep vein thrombosis [Unknown]
  - Cellulitis [Unknown]
  - Testis cancer [Unknown]

NARRATIVE: CASE EVENT DATE: 20140303
